FAERS Safety Report 21786496 (Version 2)
Quarter: 2023Q1

REPORT INFORMATION
  Report Type: Spontaneous
  Country: US (occurrence: US)
  Receive Date: 20221228
  Receipt Date: 20230111
  Transmission Date: 20230418
  Serious: Yes (Other)
  Sender: FDA-Public Use
  Company Number: US-TOLMAR, INC.-22US038171

PATIENT

DRUGS (1)
  1. KETOCONAZOLE [Suspect]
     Active Substance: KETOCONAZOLE
     Indication: Product used for unknown indication
     Dosage: UNK

REACTIONS (1)
  - Erectile dysfunction [Unknown]
